FAERS Safety Report 7460270-2 (Version None)
Quarter: 2011Q2

REPORT INFORMATION
  Report Type: 
  Country: None (occurrence: None)
  Receive Date: 20110505
  Receipt Date: 20110428
  Transmission Date: 20111010
  Serious: Yes (Other)
  Sender: FDA-Public Use
  Company Number: BR-ABBOTT-10P-020-0655150-00

PATIENT
  Sex: Female
  Weight: 60 kg

DRUGS (13)
  1. PREDNISONE [Concomitant]
     Indication: RHEUMATOID ARTHRITIS
     Route: 048
     Dates: start: 19800101
  2. INSULIN [Concomitant]
     Indication: DIABETES MELLITUS
     Route: 050
     Dates: start: 20060101
  3. CHLOROQUINE [Concomitant]
     Indication: RHEUMATOID ARTHRITIS
     Route: 048
     Dates: start: 20020101
  4. SIMVASTATIN [Concomitant]
     Indication: BLOOD CHOLESTEROL
     Route: 048
  5. HUMIRA [Suspect]
     Indication: RHEUMATOID ARTHRITIS
     Route: 058
     Dates: start: 20040101
  6. CLONAZEPAM [Concomitant]
     Indication: INSOMNIA
     Route: 048
     Dates: start: 20000101
  7. PROPRANOLOL [Concomitant]
     Indication: CARDIAC DISORDER
     Dosage: 2-40MG TABLETS IN 24 HOURS
     Route: 048
     Dates: start: 20060101
  8. METHOTREXATE [Suspect]
     Indication: RHEUMATOID ARTHRITIS
     Route: 048
     Dates: start: 20040101
  9. CYCLOBENZAPRINE [Concomitant]
     Indication: RHEUMATOID ARTHRITIS
     Route: 048
     Dates: start: 20040101
  10. PREDNISONE [Concomitant]
     Route: 048
     Dates: start: 19800101
  11. CAPTOPRIL [Concomitant]
     Indication: HYPERTENSION
     Dosage: 3-25MG TABLETS IN 24 HOURS
     Route: 048
     Dates: start: 20040101
  12. HUMIRA [Suspect]
  13. GLYBURIDE [Concomitant]
     Indication: DIABETES MELLITUS
     Route: 048
     Dates: start: 20040101

REACTIONS (16)
  - GAIT DISTURBANCE [None]
  - HYPERTENSION [None]
  - HEPATOTOXICITY [None]
  - VOMITING [None]
  - FINGER DEFORMITY [None]
  - NAUSEA [None]
  - DRUG INEFFECTIVE [None]
  - BONE DISORDER [None]
  - ARTHROPATHY [None]
  - ARTHRALGIA [None]
  - PAIN [None]
  - LIMB DEFORMITY [None]
  - DIABETES MELLITUS [None]
  - HEART RATE INCREASED [None]
  - FOOT DEFORMITY [None]
  - OSTEOPOROSIS [None]
